FAERS Safety Report 10258810 (Version 1)
Quarter: 2014Q2

REPORT INFORMATION
  Report Type: Spontaneous
  Country: US (occurrence: None)
  Receive Date: 20140623
  Receipt Date: 20140623
  Transmission Date: 20141212
  Serious: No
  Sender: FDA-Public Use
  Company Number: None

PATIENT
  Age: 36 Year
  Sex: Female
  Weight: 65.77 kg

DRUGS (2)
  1. KENALOG [Suspect]
     Indication: VIRAL PHARYNGITIS
  2. KENALOG [Suspect]
     Indication: MONONUCLEOSIS SYNDROME

REACTIONS (2)
  - Injection site pain [None]
  - Injection site atrophy [None]
